FAERS Safety Report 15592096 (Version 1)
Quarter: 2018Q4

REPORT INFORMATION
  Report Type: Spontaneous
  Country: US (occurrence: US)
  Receive Date: 20181106
  Receipt Date: 20181106
  Transmission Date: 20190205
  Serious: No
  Sender: FDA-Public Use
  Company Number: US-PFIZER INC-2018444600

PATIENT
  Sex: Female

DRUGS (2)
  1. ESTROPIPATE. [Suspect]
     Active Substance: ESTROPIPATE
     Indication: OESTROGEN THERAPY
     Dosage: UNK
  2. OGEN [Suspect]
     Active Substance: ESTROPIPATE
     Indication: OESTROGEN THERAPY
     Dosage: UNK

REACTIONS (1)
  - Migraine [Unknown]
